FAERS Safety Report 19105250 (Version 2)
Quarter: 2021Q2

REPORT INFORMATION
  Report Type: Spontaneous
  Country: BG (occurrence: BG)
  Receive Date: 20210407
  Receipt Date: 20210601
  Transmission Date: 20210717
  Serious: Yes (Death)
  Sender: FDA-Public Use
  Company Number: BG-ASTRAZENECA-2021A264369

PATIENT
  Age: 35 Year
  Sex: Male

DRUGS (2)
  1. TAGRISSO [Suspect]
     Active Substance: OSIMERTINIB
     Indication: LUNG CANCER METASTATIC
     Route: 048
  2. IRESSA [Concomitant]
     Active Substance: GEFITINIB
     Indication: PROPHYLAXIS

REACTIONS (2)
  - Lymphangiosis carcinomatosa [Fatal]
  - COVID-19 pneumonia [Fatal]

NARRATIVE: CASE EVENT DATE: 20210121
